FAERS Safety Report 17224244 (Version 1)
Quarter: 2020Q1

REPORT INFORMATION
  Report Type: Spontaneous
  Country: NL (occurrence: NL)
  Receive Date: 20200102
  Receipt Date: 20200102
  Transmission Date: 20200409
  Serious: Yes (Other)
  Sender: FDA-Public Use
  Company Number: NL-MYLANLABS-2019M1129868

PATIENT
  Age: 74 Year
  Sex: Female
  Weight: 65 kg

DRUGS (11)
  1. FUROSEMIDE. [Suspect]
     Active Substance: FUROSEMIDE
     Indication: CARDIAC FAILURE
     Dosage: 1D1
     Route: 048
     Dates: start: 20191005
  2. FLIXOTIDE [Concomitant]
     Active Substance: FLUTICASONE PROPIONATE
     Dosage: 2 - 0 - 0 - 2  MILLILITER
  3. PARACETAMOL [Concomitant]
     Active Substance: ACETAMINOPHEN
     Dosage: 08:00U 2ST - 14:00U 2ST - 21:00U 2ST
  4. TIMOPTOL [Concomitant]
     Active Substance: TIMOLOL
     Dosage: 1 - 0 - 0 - 1  ONE DROP IN BOTH EYES
     Route: 047
  5. METOPROLOL. [Concomitant]
     Active Substance: METOPROLOL
     Dosage: 1 - 0 - 0 - 0  STUKS
  6. CLOBETASOL [Concomitant]
     Active Substance: CLOBETASOL
     Dosage: 1 - 0 - 0 - 1  GRAM EVERY OTHER DAY
  7. OMEPRAZOL                          /00661201/ [Concomitant]
     Active Substance: OMEPRAZOLE
     Dosage: 0 - 0 - 1 - 0  STUKS
  8. CALCI CHEW D3 [Concomitant]
     Active Substance: CALCIUM CARBONATE\CHOLECALCIFEROL
     Dosage: 18:00U 1ST, STOP 26-11-2019
  9. MACROGOL [Concomitant]
     Active Substance: POLYETHYLENE GLYCOLS
     Dosage: 1 - 0 - 0 - 0  STUKS
  10. COMBIVENT [Concomitant]
     Active Substance: ALBUTEROL SULFATE\IPRATROPIUM BROMIDE
     Dosage: 2.5 - 2.5 - 2.5 - 2.5  MILLILITER
  11. HYDROCHLOORTHIAZIDE [Concomitant]
     Active Substance: HYDROCHLOROTHIAZIDE
     Dosage: 1 - 0 - 0 - 0  STUKS

REACTIONS (1)
  - Pemphigoid [Recovering/Resolving]

NARRATIVE: CASE EVENT DATE: 20191010
